FAERS Safety Report 5263812-0 (Version None)
Quarter: 2007Q1

REPORT INFORMATION
  Report Type: 
  Country: None (occurrence: None)
  Receive Date: 20070313
  Receipt Date: 20070312
  Transmission Date: 20070707
  Serious: Yes (Other)
  Sender: FDA-Public Use
  Company Number: US-GLAXOSMITHKLINE-A0642454A

PATIENT
  Age: 73 Year
  Sex: Female

DRUGS (11)
  1. ADVAIR DISKUS 100/50 [Suspect]
     Indication: CHRONIC OBSTRUCTIVE PULMONARY DISEASE
     Route: 055
  2. SPIRIVA [Concomitant]
  3. UNKNOWN MEDICATION [Concomitant]
  4. LEVOTHYROXINE SODIUM [Concomitant]
  5. ACTONEL [Concomitant]
  6. CALCIUM CITRATE [Concomitant]
  7. ASCORBIC ACID [Concomitant]
  8. CLOPIDOGREL [Concomitant]
  9. CLINDAMYCIN [Concomitant]
  10. SPIRONOLACTONE [Concomitant]
  11. OMEPRAZOLE [Concomitant]

REACTIONS (1)
  - ANGINA PECTORIS [None]
